FAERS Safety Report 12829018 (Version 1)
Quarter: 2016Q4

REPORT INFORMATION
  Report Type: Spontaneous
  Country: US (occurrence: US)
  Receive Date: 20161007
  Receipt Date: 20161007
  Transmission Date: 20170207
  Serious: No
  Sender: FDA-Public Use
  Company Number: US-SA-2016SA038672

PATIENT
  Sex: Female

DRUGS (12)
  1. POLYETHYLENE GLYCOL [Concomitant]
     Active Substance: POLYETHYLENE GLYCOLS
  2. LOVASTATIN. [Concomitant]
     Active Substance: LOVASTATIN
  3. CEPHALEXIN. [Concomitant]
     Active Substance: CEPHALEXIN
  4. NYSTATIN. [Concomitant]
     Active Substance: NYSTATIN
  5. HUMALOG [Concomitant]
     Active Substance: INSULIN LISPRO
  6. BETASERON [Concomitant]
     Active Substance: INTERFERON BETA-1B
  7. TRIAMCINOLONE ACETONIDE. [Concomitant]
     Active Substance: TRIAMCINOLONE ACETONIDE
  8. AMOXICILLIN. [Concomitant]
     Active Substance: AMOXICILLIN
  9. BACLOFEN. [Concomitant]
     Active Substance: BACLOFEN
  10. CYCLOBENZAPRINE HYDROCHLORIDE. [Concomitant]
     Active Substance: CYCLOBENZAPRINE HYDROCHLORIDE
  11. LEVOTHYROXINE SODIUM. [Concomitant]
     Active Substance: LEVOTHYROXINE SODIUM
  12. AUBAGIO [Suspect]
     Active Substance: TERIFLUNOMIDE
     Indication: MULTIPLE SCLEROSIS
     Route: 065
     Dates: start: 20141227, end: 20160221

REACTIONS (1)
  - Drug ineffective [Unknown]
